FAERS Safety Report 6807843-5 (Version None)
Quarter: 2010Q2

REPORT INFORMATION
  Report Type: 
  Country: None (occurrence: None)
  Receive Date: 20100629
  Receipt Date: 20090127
  Transmission Date: 20101027
  Serious: No
  Sender: FDA-Public Use
  Company Number: US-PFIZER INC-2009162811

PATIENT
  Sex: Female

DRUGS (2)
  1. ALPRAZOLAM [Suspect]
     Indication: ANXIETY
     Dosage: 0.5 MG TABLETS, A? IN THE MORNING, A? IN THE AFTERNOON AND A WHOLE ONE IN THE EVENING
  2. CYMBALTA [Suspect]
     Dosage: UNK

REACTIONS (2)
  - PRURITUS [None]
  - URTICARIA [None]
